FAERS Safety Report 21734570 (Version 1)
Quarter: 2022Q4

REPORT INFORMATION
  Report Type: Report from Study
  Country: US (occurrence: US)
  Receive Date: 20221215
  Receipt Date: 20221215
  Transmission Date: 20230112
  Serious: Yes (Hospitalization)
  Sender: FDA-Public Use
  Company Number: US-OTSUKA-2022_045766

PATIENT
  Age: 82 Year
  Sex: Female
  Weight: 69.84 kg

DRUGS (2)
  1. CEDAZURIDINE\DECITABINE [Suspect]
     Active Substance: CEDAZURIDINE\DECITABINE
     Indication: Myelodysplastic syndrome
     Dosage: 1 DF (35 MG OF DECITABINE AND 100 MG OF CEDAZURIDINE), QD (DAYS 1 THROUGH 5 OF EACH 28 DAYS CYCLE)
     Route: 048
     Dates: start: 20220615
  2. CEDAZURIDINE\DECITABINE [Suspect]
     Active Substance: CEDAZURIDINE\DECITABINE
     Indication: Refractory cytopenia with unilineage dysplasia
     Dosage: 1 DF (35 MG OF DECITABINE AND 100 MG OF CEDAZURIDINE), QD (DAYS 1 THROUGH 3 OF EACH 28 DAYS CYCLE)
     Route: 048

REACTIONS (4)
  - Neutropenic colitis [Unknown]
  - Infection [Recovered/Resolved]
  - Diarrhoea [Unknown]
  - Product use issue [Unknown]

NARRATIVE: CASE EVENT DATE: 20220615
